FAERS Safety Report 24860916 (Version 2)
Quarter: 2025Q1

REPORT INFORMATION
  Report Type: Spontaneous
  Country: FR (occurrence: FR)
  Receive Date: 20250120
  Receipt Date: 20250128
  Transmission Date: 20250409
  Serious: Yes (Hospitalization, Other)
  Sender: ROCHE
  Company Number: None

PATIENT
  Age: 57 Year
  Sex: Female

DRUGS (10)
  1. VALGANCICLOVIR [Suspect]
     Active Substance: VALGANCICLOVIR
     Indication: Infection
     Route: 048
     Dates: start: 20241009, end: 20241216
  2. CELLCEPT [Suspect]
     Active Substance: MYCOPHENOLATE MOFETIL
     Indication: Transplant
     Route: 048
     Dates: start: 20241009, end: 20241212
  3. BACTRIM [Suspect]
     Active Substance: SULFAMETHOXAZOLE\TRIMETHOPRIM
     Indication: Prophylaxis
     Route: 048
     Dates: start: 20241009, end: 20241212
  4. LANSOPRAZOLE [Suspect]
     Active Substance: LANSOPRAZOLE
     Indication: Transplant
     Route: 048
     Dates: start: 20241009, end: 20241216
  5. ONDANSETRON [Suspect]
     Active Substance: ONDANSETRON
     Indication: Prophylaxis
     Route: 048
     Dates: start: 20241009, end: 20241216
  6. LERCANIDIPINE [Concomitant]
     Active Substance: LERCANIDIPINE
     Dosage: 10MG IN THE MORNING AND EVENING
     Route: 065
  7. IRBESARTAN [Concomitant]
     Active Substance: IRBESARTAN
     Dosage: 150MG IN THE MORNING
     Route: 065
  8. HYDROCHLOROTHIAZIDE [Concomitant]
     Active Substance: HYDROCHLOROTHIAZIDE
     Dosage: 12.5MG IN THE MORNING
     Route: 065
  9. Calcidose [Concomitant]
     Route: 065
  10. Spasfon [Concomitant]
     Route: 065

REACTIONS (4)
  - Agranulocytosis [Not Recovered/Not Resolved]
  - Neutropenia [Unknown]
  - Lymphopenia [Unknown]
  - Off label use [Unknown]

NARRATIVE: CASE EVENT DATE: 20241212
